FAERS Safety Report 25551720 (Version 1)
Quarter: 2025Q3

REPORT INFORMATION
  Report Type: Spontaneous
  Country: US (occurrence: None)
  Receive Date: 20250714
  Receipt Date: 20250714
  Transmission Date: 20251020
  Serious: Yes (Life-Threatening, Disabling)
  Sender: FDA-CTU
  Company Number: None

PATIENT
  Age: 39 Year
  Sex: Female
  Weight: 64.35 kg

DRUGS (1)
  1. MONISTAT TIOCONAZOLE 1 [Suspect]
     Active Substance: TIOCONAZOLE
     Indication: Fungal infection
     Route: 050
     Dates: start: 20250710, end: 20250710

REACTIONS (7)
  - Vulvovaginal swelling [None]
  - Vulvovaginal burning sensation [None]
  - Vaginal haemorrhage [None]
  - Chemical burn [None]
  - Application site burn [None]
  - Vulvovaginal pain [None]
  - Application site pain [None]

NARRATIVE: CASE EVENT DATE: 20250710
